FAERS Safety Report 4916624-9 (Version None)
Quarter: 2006Q1

REPORT INFORMATION
  Report Type: 
  Country: None (occurrence: None)
  Receive Date: 20060220
  Receipt Date: 20050728
  Transmission Date: 20060701
  Serious: Yes (Other)
  Sender: FDA-Public Use
  Company Number: 2006/00014

PATIENT
  Age: 42 Year
  Sex: Male

DRUGS (1)
  1. LAMIVUDINE [Suspect]
     Indication: HEPATITIS B
     Dosage: 100MG PER DAY
     Route: 048
     Dates: start: 19960101

REACTIONS (3)
  - BACK PAIN [None]
  - NEPHROLITHIASIS [None]
  - RED BLOOD CELLS URINE POSITIVE [None]
